FAERS Safety Report 6700907 (Version 5)
Quarter: 2013Q2

REPORT INFORMATION
  Report Type: Spontaneous
  Country: US (occurrence: US)
  Receive Date: 20080716
  Receipt Date: 20130408
  Transmission Date: 20140414
  Serious: Yes (Other)
  Sender: FDA-Public Use
  Company Number: US-BAYER-200827520NA

PATIENT
  Age: 66 Year
  Sex: Female
  Weight: 46.82 kg

DRUGS (8)
  1. CLIMARA (ESTRADIOL) [Suspect]
     Indication: PRODUCT USED FOR UNKNOWN INDICATION
     Route: 062
  2. ESTRACE [Suspect]
     Indication: PRODUCT USED FOR UNKNOWN INDICATION
  3. PROVERA [Suspect]
     Indication: MENOPAUSE
     Dosage: 5 MG (DAILY DOSE), , ORAL
     Route: 048
     Dates: start: 19960204, end: 19980524
  4. ESTRADERM [Suspect]
     Indication: MENOPAUSE
     Dates: start: 19960204, end: 19990630
  5. ESTROGEN [Suspect]
     Indication: MENOPAUSE
  6. DEPO PROVERA [Suspect]
     Indication: MENOPAUSE
  7. CYCRIN [Suspect]
     Indication: MENOPAUSE
  8. PREMARIN [Suspect]
     Indication: PRODUCT USED FOR UNKNOWN INDICATION

REACTIONS (1)
  - Invasive ductal breast carcinoma [Unknown]
